FAERS Safety Report 8019279-2 (Version None)
Quarter: 2011Q4

REPORT INFORMATION
  Report Type: 
  Country: None (occurrence: None)
  Receive Date: 20111229
  Receipt Date: 20111215
  Transmission Date: 20120403
  Serious: Yes (Other)
  Sender: FDA-Public Use
  Company Number: 1142997

PATIENT
  Age: 36 Year
  Sex: Female
  Weight: 68.9 kg

DRUGS (4)
  1. ZOFRAN [Concomitant]
  2. MORPHINE SULFATE [Suspect]
     Indication: PAIN
     Dosage: 4 MG, 1 INTRAVENOUS (NOT OTHERWISE SPECIFIED)
     Route: 042
     Dates: start: 20111111
  3. MORPHINE SULFATE [Suspect]
     Indication: PAIN
     Dosage: 4 MG, 1 INTRAVENOUS (NOT OTHERWISE SPECIFIED)
     Route: 042
     Dates: start: 20111111
  4. SODIUM CHLORIDE 0.9% INJECTION, USP [Concomitant]

REACTIONS (3)
  - INFUSION SITE RASH [None]
  - INFUSION SITE ERYTHEMA [None]
  - INFUSION SITE WARMTH [None]
